FAERS Safety Report 12707436 (Version 2)
Quarter: 2016Q3

REPORT INFORMATION
  Report Type: Spontaneous
  Country: US (occurrence: US)
  Receive Date: 20160901
  Receipt Date: 20160906
  Transmission Date: 20161109
  Serious: Yes (Other)
  Sender: FDA-Public Use
  Company Number: US-BAYER-2016-168746

PATIENT
  Age: 47 Year
  Sex: Male

DRUGS (1)
  1. CIPRO [Suspect]
     Active Substance: CIPROFLOXACIN HYDROCHLORIDE
     Indication: SINUSITIS
     Dosage: 1 CAPSULE A DAY
     Route: 048
     Dates: start: 20160626, end: 20160705

REACTIONS (4)
  - Finger deformity [None]
  - Ligament injury [Not Recovered/Not Resolved]
  - Cast application [None]
  - Muscle spasms [None]

NARRATIVE: CASE EVENT DATE: 20160705
